FAERS Safety Report 25753845 (Version 2)
Quarter: 2025Q3

REPORT INFORMATION
  Report Type: Report from Study
  Country: US (occurrence: US)
  Receive Date: 20250903
  Receipt Date: 20250911
  Transmission Date: 20251021
  Serious: No
  Sender: SUNOVION
  Company Number: US-SUMITOMO PHARMA SWITZERLAND GMBH-2025SPA011049

PATIENT
  Age: 83 Year
  Sex: Male

DRUGS (19)
  1. ORGOVYX [Suspect]
     Active Substance: RELUGOLIX
     Indication: Prostate cancer
     Route: 048
  2. ORGOVYX [Suspect]
     Active Substance: RELUGOLIX
     Route: 048
  3. ALPHAGAN P [Concomitant]
     Active Substance: BRIMONIDINE TARTRATE
  4. ASPIRIN [Concomitant]
     Active Substance: ASPIRIN
  5. ATORVASTATIN [Concomitant]
     Active Substance: ATORVASTATIN
  6. BENICAR [Concomitant]
     Active Substance: OLMESARTAN MEDOXOMIL
  7. ELIDEL [Concomitant]
     Active Substance: PIMECROLIMUS
  8. FARXIGA [Concomitant]
     Active Substance: DAPAGLIFLOZIN PROPANEDIOL
  9. FENOFIBRATE [Concomitant]
     Active Substance: FENOFIBRATE
  10. GLIPIZIDE [Concomitant]
     Active Substance: GLIPIZIDE
  11. ICOSAPENT [Concomitant]
     Active Substance: ICOSAPENT
  12. MOUNJARO [Concomitant]
     Active Substance: TIRZEPATIDE
  13. RESTASIS [Concomitant]
     Active Substance: CYCLOSPORINE
  14. ROCKLATAN [Concomitant]
     Active Substance: LATANOPROST\NETARSUDIL MESYLATE
  15. ZETIA [Concomitant]
     Active Substance: EZETIMIBE
  16. FLOMAX [Concomitant]
     Active Substance: TAMSULOSIN HYDROCHLORIDE
  17. Gas-x max strength [Concomitant]
  18. REFRESH PLUS [Concomitant]
     Active Substance: CARBOXYMETHYLCELLULOSE SODIUM
     Route: 047
  19. VITAMIN D3 [Concomitant]
     Active Substance: CHOLECALCIFEROL

REACTIONS (2)
  - Hot flush [Unknown]
  - Product dose omission issue [Recovered/Resolved]
